FAERS Safety Report 7261941-3 (Version None)
Quarter: 2011Q1

REPORT INFORMATION
  Report Type: 
  Country: None (occurrence: None)
  Receive Date: 20110130
  Receipt Date: 20101129
  Transmission Date: 20110831
  Serious: No
  Sender: FDA-Public Use
  Company Number: US-ABBOTT-10P-163-0689021-00

PATIENT
  Sex: Female
  Weight: 58.112 kg

DRUGS (1)
  1. HUMIRA [Suspect]
     Indication: CROHN'S DISEASE
     Route: 058
     Dates: start: 20100601

REACTIONS (4)
  - DIARRHOEA HAEMORRHAGIC [None]
  - ALOPECIA [None]
  - CONDITION AGGRAVATED [None]
  - ABNORMAL FAECES [None]
